FAERS Safety Report 6102210-4 (Version None)
Quarter: 2009Q1

REPORT INFORMATION
  Report Type: 
  Country: None (occurrence: None)
  Receive Date: 20090303
  Receipt Date: 20090303
  Transmission Date: 20090719
  Serious: Yes (Hospitalization)
  Sender: FDA-Public Use
  Company Number: None

PATIENT
  Age: 87 Year
  Sex: Male
  Weight: 77.5651 kg

DRUGS (1)
  1. GLYBURIDE [Suspect]

REACTIONS (1)
  - STENT PLACEMENT [None]
